FAERS Safety Report 12963503 (Version 1)
Quarter: 2016Q4

REPORT INFORMATION
  Report Type: Spontaneous
  Country: TW (occurrence: TW)
  Receive Date: 20161122
  Receipt Date: 20161122
  Transmission Date: 20170207
  Serious: Yes (Death, Other)
  Sender: FDA-Public Use
  Company Number: TW-ACCORD-045640

PATIENT
  Age: 76 Year
  Sex: Male

DRUGS (2)
  1. ETOPOSIDE. [Suspect]
     Active Substance: ETOPOSIDE
     Indication: NEOPLASM MALIGNANT
     Dosage: RECEIVED THREE CYCLES OF ADJUVANT CHEMOTHERAPY
  2. CISPLATIN. [Suspect]
     Active Substance: CISPLATIN
     Indication: NEOPLASM MALIGNANT
     Dosage: RECEIVED THREE CYCLES OF ADJUVANT CHEMOTHERAPY

REACTIONS (2)
  - Respiratory failure [Fatal]
  - Pneumonia [Fatal]
